FAERS Safety Report 24786787 (Version 3)
Quarter: 2025Q1

REPORT INFORMATION
  Report Type: Spontaneous
  Country: JP (occurrence: JP)
  Receive Date: 20241230
  Receipt Date: 20250227
  Transmission Date: 20250409
  Serious: Yes (Other)
  Sender: ASTELLAS
  Company Number: JP-ASTELLAS-2024JP005099

PATIENT
  Age: 8 Decade
  Sex: Female
  Weight: 42 kg

DRUGS (12)
  1. VYLOY [Suspect]
     Active Substance: ZOLBETUXIMAB-CLZB
     Indication: Gastric cancer
     Route: 042
     Dates: start: 20240717
  2. OXALIPLATIN [Suspect]
     Active Substance: OXALIPLATIN
     Indication: Product used for unknown indication
     Route: 065
     Dates: start: 20240717
  3. OXALIPLATIN [Suspect]
     Active Substance: OXALIPLATIN
     Route: 065
     Dates: start: 20240807
  4. UNSPECIFIED INGREDIENT [Suspect]
     Active Substance: UNSPECIFIED INGREDIENT
     Indication: Decreased appetite
     Route: 048
     Dates: end: 20240726
  5. ENSURE [Suspect]
     Active Substance: AMINO ACIDS\DEXTROSE\ELECTROLYTES NOS\SOYBEAN OIL\VITAMINS
     Indication: Decreased appetite
     Route: 048
     Dates: end: 20240726
  6. CAPECITABINE [Concomitant]
     Active Substance: CAPECITABINE
     Indication: Gastric cancer
     Route: 048
     Dates: start: 20240717, end: 20241001
  7. OLANZAPINE [Concomitant]
     Active Substance: OLANZAPINE
     Indication: Vomiting
     Route: 065
     Dates: start: 202407, end: 20240726
  8. ZYPREXA [Concomitant]
     Active Substance: OLANZAPINE
     Indication: Prophylaxis
     Route: 048
     Dates: start: 20240716, end: 20240921
  9. Pydoxal tablet [Concomitant]
     Indication: Prophylaxis
     Route: 048
     Dates: start: 20240717
  10. Decadron tablet [Concomitant]
     Indication: Prophylaxis
     Route: 048
     Dates: start: 20240718, end: 20240921
  11. Takecab tablet [Concomitant]
     Indication: Prophylaxis
     Route: 048
     Dates: start: 20240719
  12. Ferromia tablet [Concomitant]
     Indication: Iron deficiency anaemia
     Route: 048
     Dates: start: 20240718

REACTIONS (5)
  - Neuropathy peripheral [Recovered/Resolved]
  - Nausea [Recovered/Resolved]
  - Decreased appetite [Recovered/Resolved]
  - Vomiting [Recovered/Resolved]
  - Malaise [Not Recovered/Not Resolved]

NARRATIVE: CASE EVENT DATE: 20240717
